FAERS Safety Report 16647908 (Version 1)
Quarter: 2019Q3

REPORT INFORMATION
  Report Type: Spontaneous
  Country: US (occurrence: US)
  Receive Date: 20190729
  Receipt Date: 20190729
  Transmission Date: 20191004
  Serious: Yes (Other)
  Sender: FDA-Public Use
  Company Number: None

PATIENT
  Age: 32 Year
  Sex: Female
  Weight: 76.5 kg

DRUGS (6)
  1. AVIANE BIRTH CONTROL [Concomitant]
  2. TRI-LO SPRINTEC [Suspect]
     Active Substance: ETHINYL ESTRADIOL\NORGESTIMATE
     Indication: MENSTRUAL CYCLE MANAGEMENT
     Dosage: ?          QUANTITY:1 TABLET(S);?
     Route: 048
     Dates: start: 20190519, end: 20190706
  3. ADVIL [Concomitant]
     Active Substance: IBUPROFEN
  4. TRI-LO SPRINTEC [Suspect]
     Active Substance: ETHINYL ESTRADIOL\NORGESTIMATE
     Indication: CONTRACEPTION
     Dosage: ?          QUANTITY:1 TABLET(S);?
     Route: 048
     Dates: start: 20190519, end: 20190706
  5. TRI-LO SPRINTEC [Suspect]
     Active Substance: ETHINYL ESTRADIOL\NORGESTIMATE
     Indication: OVARIAN CYST
     Dosage: ?          QUANTITY:1 TABLET(S);?
     Route: 048
     Dates: start: 20190519, end: 20190706
  6. ZYRTEC [Concomitant]
     Active Substance: CETIRIZINE HYDROCHLORIDE

REACTIONS (11)
  - Depression [None]
  - Suicidal ideation [None]
  - Feeling abnormal [None]
  - Irritability [None]
  - Abdominal distension [None]
  - Loss of libido [None]
  - Anxiety [None]
  - Product substitution issue [None]
  - Affect lability [None]
  - Personal relationship issue [None]
  - Weight increased [None]

NARRATIVE: CASE EVENT DATE: 20190701
